FAERS Safety Report 8333502-6 (Version None)
Quarter: 2012Q1

REPORT INFORMATION
  Report Type: 
  Country: None (occurrence: None)
  Receive Date: 20120328
  Receipt Date: 20120203
  Transmission Date: 20120608
  Serious: No
  Sender: FDA-Public Use
  Company Number: 2012P1004256

PATIENT
  Sex: Male

DRUGS (2)
  1. BENAZEPRIL HYDROCHLORIDE [Suspect]
  2. WARFARIN SODIUM [Suspect]

REACTIONS (1)
  - CHROMATURIA [None]
